FAERS Safety Report 5662464-5 (Version None)
Quarter: 2008Q1

REPORT INFORMATION
  Report Type: 
  Country: None (occurrence: None)
  Receive Date: 20080313
  Receipt Date: 20080305
  Transmission Date: 20080703
  Serious: Yes (Other)
  Sender: FDA-Public Use
  Company Number: PHEH2006US04718

PATIENT
  Age: 52 Year
  Sex: Female
  Weight: 81.632 kg

DRUGS (11)
  1. AREDIA [Suspect]
     Indication: BONE CANCER METASTATIC
     Dosage: UNK, QMO
     Dates: start: 20020201, end: 20031021
  2. ZOMETA [Suspect]
     Indication: METASTASES TO BONE
     Dosage: UNK, QMO
     Dates: start: 20030101
  3. FEMARA [Concomitant]
     Indication: BREAST CANCER
  4. SYNTHROID [Concomitant]
     Dosage: 0.112 MG, UNK
  5. CELEBREX [Concomitant]
     Dosage: 200 MG, BID
  6. NASONEX [Concomitant]
  7. VITAMIN E [Concomitant]
     Dosage: 1000 IU, QD
     Route: 048
  8. ASCORBIC ACID [Concomitant]
  9. SELENIUM [Concomitant]
  10. CLARINEX /USA/ [Concomitant]
  11. THERATOPE [Concomitant]

REACTIONS (9)
  - CERVICAL SPINE FLATTENING [None]
  - EMOTIONAL DISTRESS [None]
  - INJURY [None]
  - INTERVERTEBRAL DISC OPERATION [None]
  - NECK PAIN [None]
  - OSTEONECROSIS [None]
  - PAIN [None]
  - RADICULOPATHY [None]
  - SPINAL OSTEOARTHRITIS [None]
